FAERS Safety Report 8174312-2 (Version None)
Quarter: 2012Q1

REPORT INFORMATION
  Report Type: 
  Country: None (occurrence: None)
  Receive Date: 20120229
  Receipt Date: 20120222
  Transmission Date: 20120608
  Serious: Yes (Life-Threatening)
  Sender: FDA-Public Use
  Company Number: FR-MERCK-1202USA03741

PATIENT
  Age: 61 Year
  Sex: Female

DRUGS (10)
  1. LYRICA [Concomitant]
     Route: 065
     Dates: end: 20111201
  2. EMEND [Suspect]
     Route: 048
     Dates: start: 20111205, end: 20111206
  3. ZOFRAN [Suspect]
     Route: 042
     Dates: start: 20111205, end: 20111206
  4. OXYCODONE HCL [Concomitant]
     Route: 065
  5. IFOSFAMIDE [Suspect]
     Route: 042
     Dates: start: 20110801
  6. SOLU-MEDROL [Suspect]
     Route: 042
     Dates: start: 20111205, end: 20111206
  7. LYRICA [Concomitant]
     Route: 065
     Dates: start: 20111201
  8. IFOSFAMIDE [Suspect]
     Indication: ENDOMETRIAL SARCOMA
     Route: 042
     Dates: start: 20111205, end: 20111206
  9. DURAGESIC-100 [Concomitant]
     Route: 065
  10. MESNA [Suspect]
     Route: 042
     Dates: start: 20111205, end: 20111206

REACTIONS (1)
  - ENCEPHALOPATHY [None]
